FAERS Safety Report 20871374 (Version 2)
Quarter: 2022Q2

REPORT INFORMATION
  Report Type: Spontaneous
  Country: JP (occurrence: JP)
  Receive Date: 20220525
  Receipt Date: 20220629
  Transmission Date: 20220721
  Serious: Yes (Other)
  Sender: FDA-Public Use
  Company Number: JP-ANIPHARMA-2022-JP-000178

PATIENT
  Age: 74 Year
  Sex: Female
  Weight: 45 kg

DRUGS (6)
  1. ANASTROZOLE [Suspect]
     Active Substance: ANASTROZOLE
     Indication: Breast cancer female
     Route: 048
     Dates: start: 20150312, end: 20150604
  2. FASLODEX [Suspect]
     Active Substance: FULVESTRANT
     Route: 030
     Dates: start: 20180507
  3. TAMOXIFEN CITRATE [Suspect]
     Active Substance: TAMOXIFEN CITRATE
     Dosage: 20 MG DAILY
     Route: 048
     Dates: start: 20150615, end: 20170117
  4. VERZENIO [Suspect]
     Active Substance: ABEMACICLIB
     Dosage: 300 MG BID (. 08-JAN-2020 TO 15-JAN-2020) /200 MG BID (03-JUL-2020 TO ??-???-2021)
     Route: 048
     Dates: start: 20200108, end: 2021
  5. FEMARA [Suspect]
     Active Substance: LETROZOLE
     Dosage: 2.5 MG DAILY
     Route: 048
     Dates: start: 20170118, end: 20180506
  6. PALBOCICLIB [Suspect]
     Active Substance: PALBOCICLIB
     Dosage: 100 MG DAILY
     Route: 048
     Dates: start: 20191127, end: 20191228

REACTIONS (1)
  - Interstitial lung disease [Recovered/Resolved]

NARRATIVE: CASE EVENT DATE: 20211014
